FAERS Safety Report 7747835-5 (Version None)
Quarter: 2011Q3

REPORT INFORMATION
  Report Type: 
  Country: None (occurrence: None)
  Receive Date: 20110913
  Receipt Date: 20110906
  Transmission Date: 20111222
  Serious: Yes (Other)
  Sender: FDA-Public Use
  Company Number: CA-JNJFOC-20110901962

PATIENT
  Sex: Male

DRUGS (2)
  1. REMICADE [Suspect]
     Indication: PRODUCT USED FOR UNKNOWN INDICATION
     Route: 042
     Dates: start: 20090801
  2. REMICADE [Suspect]
     Route: 042
     Dates: start: 20110831

REACTIONS (4)
  - SCIATICA [None]
  - ARTHRALGIA [None]
  - HERNIA [None]
  - APHASIA [None]
